FAERS Safety Report 7830973-6 (Version None)
Quarter: 2011Q4

REPORT INFORMATION
  Report Type: 
  Country: None (occurrence: None)
  Receive Date: 20111021
  Receipt Date: 20111014
  Transmission Date: 20120403
  Serious: Yes (Hospitalization)
  Sender: FDA-Public Use
  Company Number: AT-CEPHALON-2011005426

PATIENT
  Sex: Female
  Weight: 59 kg

DRUGS (9)
  1. RITUXIMAB [Suspect]
     Route: 042
     Dates: start: 20110620
  2. LEVOTHYROXINE SODIUM [Concomitant]
  3. CENIPRES [Concomitant]
  4. ASPIRIN [Concomitant]
  5. ENALAPRIL HCT [Concomitant]
  6. BENDAMUSTINE HCL [Suspect]
     Route: 042
     Dates: start: 20110621
  7. PANTOPRAZOLE SODIUM [Concomitant]
  8. MOVIPREP [Concomitant]
  9. METOCLOPRAMIDE HYDROCHLORIDE [Concomitant]

REACTIONS (1)
  - ATRIAL FIBRILLATION [None]
